FAERS Safety Report 5909609-7 (Version None)
Quarter: 2008Q4

REPORT INFORMATION
  Report Type: 
  Country: None (occurrence: None)
  Receive Date: 20081001
  Receipt Date: 20080922
  Transmission Date: 20090506
  Serious: Yes (Other)
  Sender: FDA-Public Use
  Company Number: GXKR2008DE08191

PATIENT
  Age: 69 Year
  Sex: Female
  Weight: 60 kg

DRUGS (5)
  1. CIPROFLOXACIN [Suspect]
     Indication: DIVERTICULITIS
     Dosage: 250 MG, BID; 500 MG, BID, ORAL
     Route: 048
     Dates: start: 20080726, end: 20080727
  2. CIPROFLOXACIN [Suspect]
     Indication: DIVERTICULITIS
     Dosage: 250 MG, BID; 500 MG, BID, ORAL
     Route: 048
     Dates: start: 20080728, end: 20080729
  3. METRONIDAZOLE [Concomitant]
  4. CEFUROXIME [Concomitant]
  5. COLESTYRAMINE (NGX) (COLESTYRAMINE) POWDER [Concomitant]

REACTIONS (1)
  - MYOSITIS [None]
